FAERS Safety Report 4880415-8 (Version None)
Quarter: 2006Q1

REPORT INFORMATION
  Report Type: 
  Country: None (occurrence: None)
  Receive Date: 20060113
  Receipt Date: 20060105
  Transmission Date: 20060701
  Serious: Yes (Hospitalization)
  Sender: FDA-Public Use
  Company Number: JP-ABBOTT-06P-087-0321593-00

PATIENT
  Age: 55 Year
  Sex: Male
  Weight: 62.8 kg

DRUGS (4)
  1. CLARITHROMYCIN [Suspect]
     Indication: ANTIBIOTIC PROPHYLAXIS
     Route: 048
     Dates: start: 20051024, end: 20051105
  2. CARBOCISTEINE [Concomitant]
     Indication: NASAL SEPTUM DEVIATION
     Route: 048
     Dates: start: 20051024, end: 20051105
  3. TRANEXAMIC ACID [Concomitant]
     Indication: NASAL SEPTUM DEVIATION
     Route: 048
     Dates: start: 20051024, end: 20051105
  4. PIPERACILLIN SODIUM [Concomitant]
     Indication: ANTIBIOTIC PROPHYLAXIS
     Route: 042
     Dates: start: 20051021, end: 20051023

REACTIONS (1)
  - ENTEROCOLITIS HAEMORRHAGIC [None]
